FAERS Safety Report 7477045-0 (Version None)
Quarter: 2011Q2

REPORT INFORMATION
  Report Type: 
  Country: None (occurrence: None)
  Receive Date: 20110512
  Receipt Date: 20110505
  Transmission Date: 20111010
  Serious: Yes (Other)
  Sender: FDA-Public Use
  Company Number: US-RB-027088-11

PATIENT

DRUGS (1)
  1. SUBOXONE [Suspect]
     Dosage: SUBLINGUAL FILM / UNKNOWN DOSING INFORMATION
     Route: 065

REACTIONS (1)
  - GRAND MAL CONVULSION [None]
